FAERS Safety Report 19656214 (Version 1)
Quarter: 2021Q3

REPORT INFORMATION
  Report Type: Spontaneous
  Country: FR (occurrence: FR)
  Receive Date: 20210804
  Receipt Date: 20210804
  Transmission Date: 20211014
  Serious: Yes (Other)
  Sender: FDA-Public Use
  Company Number: FR-MYLANLABS-2021M1047194

PATIENT
  Age: 71 Year
  Sex: Male

DRUGS (1)
  1. LEVOFLOXACIN. [Suspect]
     Active Substance: LEVOFLOXACIN
     Indication: CYSTITIS
     Dosage: UNSPECIFIED
     Route: 048
     Dates: start: 20191019, end: 20191024

REACTIONS (1)
  - Synovial disorder [Recovered/Resolved]

NARRATIVE: CASE EVENT DATE: 20191024
